FAERS Safety Report 11494543 (Version 1)
Quarter: 2015Q3

REPORT INFORMATION
  Report Type: Report from Study
  Country: IL (occurrence: IL)
  Receive Date: 20150911
  Receipt Date: 20150911
  Transmission Date: 20151125
  Serious: Yes (Hospitalization)
  Sender: FDA-Public Use
  Company Number: PHHY2014IL121460

PATIENT
  Sex: Female

DRUGS (2)
  1. GILENYA [Suspect]
     Active Substance: FINGOLIMOD HYDROCHLORIDE
     Indication: MULTIPLE SCLEROSIS
     Dosage: 0.5 MG, QD
     Route: 048
     Dates: start: 20140819, end: 20150215
  2. GILENYA [Suspect]
     Active Substance: FINGOLIMOD HYDROCHLORIDE
     Dosage: 0.5 MG, QD
     Route: 048
     Dates: start: 201507, end: 201508

REACTIONS (8)
  - Jaundice [Recovering/Resolving]
  - Multiple sclerosis relapse [Unknown]
  - Liver function test abnormal [Recovering/Resolving]
  - Chromaturia [Recovered/Resolved]
  - Dysuria [Recovered/Resolved]
  - Vaginal infection [Recovered/Resolved]
  - Urinary tract infection [Unknown]
  - Urine odour abnormal [Recovered/Resolved]
